FAERS Safety Report 5481974-7 (Version None)
Quarter: 2007Q4

REPORT INFORMATION
  Report Type: 
  Country: None (occurrence: None)
  Receive Date: 20071005
  Receipt Date: 20070921
  Transmission Date: 20080405
  Serious: Yes (Disabling)
  Sender: FDA-Public Use
  Company Number: 2007S1006770

PATIENT
  Sex: Female
  Weight: 55.3388 kg

DRUGS (2)
  1. ALLOPURINOL [Suspect]
     Indication: BLOOD URIC ACID INCREASED
     Dosage: 100 MG; DAILY; ORAL
     Route: 048
     Dates: start: 20070608, end: 20070611
  2. TENORETIC (CON.) [Concomitant]

REACTIONS (6)
  - GOUT [None]
  - JOINT SWELLING [None]
  - MUSCULOSKELETAL STIFFNESS [None]
  - NONSPECIFIC REACTION [None]
  - OEDEMA PERIPHERAL [None]
  - PAIN IN EXTREMITY [None]
